FAERS Safety Report 21186688 (Version 2)
Quarter: 2022Q3

REPORT INFORMATION
  Report Type: Spontaneous
  Country: US (occurrence: US)
  Receive Date: 20220808
  Receipt Date: 20220830
  Transmission Date: 20221026
  Serious: No
  Sender: FDA-Public Use
  Company Number: US-PFIZER INC-202201038103

PATIENT
  Age: 68 Year
  Sex: Female
  Weight: 50.8 kg

DRUGS (3)
  1. FLUCONAZOLE [Suspect]
     Active Substance: FLUCONAZOLE
     Indication: Fungal infection
     Dosage: 150 MG, CYCLIC (1 BY PO, 3 DAYS LATER TOOK ANOTHER, A WEEK LATER TOOK ANOTHER, AND 3 DAYS LATER)
     Route: 048
     Dates: start: 20220702
  2. BUSPAR [Concomitant]
     Active Substance: BUSPIRONE HYDROCHLORIDE
     Indication: Anxiety
     Dosage: 2.5 MG, 2X/DAY (5MG, SHE DIVIDES IT INTO 2.5MG IN MORNING AND 2.5MG AT NIGHT)
     Route: 048
  3. THYROID [Concomitant]
     Active Substance: LEVOTHYROXINE\LIOTHYRONINE
     Indication: Hypothyroidism
     Dosage: 60 MG, DAILY
     Route: 048

REACTIONS (6)
  - Drug ineffective [Unknown]
  - Pruritus [Not Recovered/Not Resolved]
  - Pain in extremity [Not Recovered/Not Resolved]
  - Rash [Not Recovered/Not Resolved]
  - COVID-19 [Unknown]
  - Weight decreased [Unknown]

NARRATIVE: CASE EVENT DATE: 20220802
